FAERS Safety Report 24146725 (Version 1)
Quarter: 2024Q3

REPORT INFORMATION
  Report Type: Spontaneous
  Country: IN (occurrence: IN)
  Receive Date: 20240729
  Receipt Date: 20240729
  Transmission Date: 20241016
  Serious: Yes (Death)
  Sender: MYLAN
  Company Number: IN-MYLANLABS-2024M1069864

PATIENT
  Age: 11 Year
  Sex: Male

DRUGS (30)
  1. DOXORUBICIN [Suspect]
     Active Substance: DOXORUBICIN
     Indication: B-cell type acute leukaemia
     Dosage: UNK, 2 CYCLES
     Route: 065
  2. DOXORUBICIN [Suspect]
     Active Substance: DOXORUBICIN
     Indication: TP53 gene mutation
  3. METHOTREXATE [Suspect]
     Active Substance: METHOTREXATE
     Indication: B-cell type acute leukaemia
     Dosage: UNK
     Route: 065
  4. METHOTREXATE [Suspect]
     Active Substance: METHOTREXATE
     Indication: TP53 gene mutation
  5. CYTARABINE [Suspect]
     Active Substance: CYTARABINE
     Indication: B-cell type acute leukaemia
     Dosage: UNK
     Route: 065
  6. CYTARABINE [Suspect]
     Active Substance: CYTARABINE
     Indication: TP53 gene mutation
  7. TACROLIMUS [Suspect]
     Active Substance: TACROLIMUS
     Indication: Prophylaxis against graft versus host disease
     Dosage: UNK
     Route: 065
  8. MYCOPHENOLATE MOFETIL [Suspect]
     Active Substance: MYCOPHENOLATE MOFETIL
     Indication: Prophylaxis against graft versus host disease
     Dosage: UNK
     Route: 065
  9. CYCLOPHOSPHAMIDE [Suspect]
     Active Substance: CYCLOPHOSPHAMIDE
     Indication: B-cell type acute leukaemia
     Dosage: UNK, 2 CYCLES
     Route: 065
  10. CYCLOPHOSPHAMIDE [Suspect]
     Active Substance: CYCLOPHOSPHAMIDE
     Indication: Prophylaxis against graft versus host disease
     Dosage: UNK
     Route: 065
  11. CYCLOPHOSPHAMIDE [Suspect]
     Active Substance: CYCLOPHOSPHAMIDE
     Indication: TP53 gene mutation
  12. VINCRISTINE [Suspect]
     Active Substance: VINCRISTINE
     Indication: B-cell type acute leukaemia
     Dosage: UNK, 2 CYCLES
     Route: 065
  13. VINCRISTINE [Suspect]
     Active Substance: VINCRISTINE
     Indication: TP53 gene mutation
  14. RUXOLITINIB [Suspect]
     Active Substance: RUXOLITINIB
     Indication: Graft versus host disease in skin
     Dosage: UNK
     Route: 065
  15. RUXOLITINIB [Suspect]
     Active Substance: RUXOLITINIB
     Indication: Graft versus host disease in gastrointestinal tract
  16. DEXAMETHASONE [Concomitant]
     Active Substance: DEXAMETHASONE
     Indication: B-cell type acute leukaemia
     Dosage: UNK UNK, CYCLE
     Route: 065
  17. DEXAMETHASONE [Concomitant]
     Active Substance: DEXAMETHASONE
     Indication: TP53 gene mutation
     Dosage: 6 MILLIGRAM/SQ. METER, DAYS 1, 8, 15, AND 22
     Route: 065
  18. VENETOCLAX [Concomitant]
     Active Substance: VENETOCLAX
     Indication: B-cell type acute leukaemia
     Dosage: DAYS 1-7
     Route: 065
  19. VENETOCLAX [Concomitant]
     Active Substance: VENETOCLAX
     Indication: TP53 gene mutation
  20. BORTEZOMIB [Concomitant]
     Active Substance: BORTEZOMIB
     Indication: B-cell type acute leukaemia
     Dosage: 1.3 MILLIGRAM/SQ. METER, DAYS 1, 4, 8 AND 11
     Route: 065
  21. BORTEZOMIB [Concomitant]
     Active Substance: BORTEZOMIB
     Indication: TP53 gene mutation
  22. INOTUZUMAB OZOGAMICIN [Concomitant]
     Active Substance: INOTUZUMAB OZOGAMICIN
     Indication: B-cell type acute leukaemia
     Dosage: 0.8 MILLIGRAM/SQ. METER, ON DAY 1; DAYS 1, 8, AND 15
     Route: 065
  23. INOTUZUMAB OZOGAMICIN [Concomitant]
     Active Substance: INOTUZUMAB OZOGAMICIN
     Indication: TP53 gene mutation
     Dosage: 0.5 MILLIGRAM/SQ. METER, ON DAYS 8 AND 15; DAYS 1, 8, AND 15
     Route: 065
  24. RITUXIMAB [Concomitant]
     Active Substance: RITUXIMAB
     Indication: B-cell type acute leukaemia
     Dosage: 375 MILLIGRAM/SQ. METER,DAYS 1, 8, 15, AND 22
     Route: 065
  25. RITUXIMAB [Concomitant]
     Active Substance: RITUXIMAB
     Indication: TP53 gene mutation
  26. POSACONAZOLE [Concomitant]
     Active Substance: POSACONAZOLE
     Indication: Product used for unknown indication
     Dosage: 300 MILLIGRAM, DAYS 1-7
     Route: 065
  27. FLUDARABINE [Concomitant]
     Active Substance: FLUDARABINE PHOSPHATE
     Indication: B-cell type acute leukaemia
     Dosage: 30 MILLIGRAM/SQ. METER, 30 MG/M2 ? 5 DAYS
     Route: 065
  28. FLUDARABINE [Concomitant]
     Active Substance: FLUDARABINE PHOSPHATE
     Indication: TP53 gene mutation
  29. TREOSULFAN [Concomitant]
     Active Substance: TREOSULFAN
     Indication: B-cell type acute leukaemia
     Dosage: 14 GRAM PER SQUARE METRE (14 G/M2 ? 3 DAYS)
     Route: 065
  30. TREOSULFAN [Concomitant]
     Active Substance: TREOSULFAN
     Indication: TP53 gene mutation

REACTIONS (1)
  - Drug ineffective [Fatal]
